FAERS Safety Report 21812406 (Version 1)
Quarter: 2023Q1

REPORT INFORMATION
  Report Type: Spontaneous
  Country: US (occurrence: US)
  Receive Date: 20230103
  Receipt Date: 20230103
  Transmission Date: 20230417
  Serious: No
  Sender: FDA-Public Use
  Company Number: US-PFIZER INC-2019318854

PATIENT
  Age: 16 Year
  Sex: Female

DRUGS (1)
  1. XELJANZ [Suspect]
     Active Substance: TOFACITINIB CITRATE
     Indication: Alopecia
     Dosage: 5 MG
     Dates: start: 20190817

REACTIONS (5)
  - Acne [Unknown]
  - Off label use [Unknown]
  - Off label use [Unknown]
  - Drug effective for unapproved indication [Unknown]
  - Product dose omission issue [Unknown]

NARRATIVE: CASE EVENT DATE: 20190817
